FAERS Safety Report 7345503-5 (Version None)
Quarter: 2011Q1

REPORT INFORMATION
  Report Type: 
  Country: None (occurrence: None)
  Receive Date: 20110310
  Receipt Date: 20110301
  Transmission Date: 20110831
  Serious: Yes (Hospitalization)
  Sender: FDA-Public Use
  Company Number: US-ASTRAZENECA-2010SE58400

PATIENT
  Sex: Male

DRUGS (2)
  1. ASCORBIC ACID [Suspect]
     Route: 048
  2. NEXIUM [Suspect]
     Route: 048

REACTIONS (4)
  - CORONARY ARTERIAL STENT INSERTION [None]
  - BACK DISORDER [None]
  - OESOPHAGEAL DISORDER [None]
  - OESOPHAGEAL SPASM [None]
